FAERS Safety Report 24777933 (Version 2)
Quarter: 2025Q1

REPORT INFORMATION
  Report Type: Spontaneous
  Country: US (occurrence: US)
  Receive Date: 20241226
  Receipt Date: 20250220
  Transmission Date: 20250409
  Serious: No
  Sender: PFIZER
  Company Number: US-PFIZER INC-PV202400165797

PATIENT
  Age: 63 Year
  Sex: Female

DRUGS (1)
  1. IBRANCE [Suspect]
     Active Substance: PALBOCICLIB

REACTIONS (8)
  - Dry mouth [Unknown]
  - Nasal dryness [Unknown]
  - Abdominal pain upper [Unknown]
  - Abdominal distension [Unknown]
  - Stomatitis [Unknown]
  - Skin exfoliation [Unknown]
  - Anal fissure [Unknown]
  - Abdominal discomfort [Unknown]
